FAERS Safety Report 6598590-6 (Version None)
Quarter: 2010Q1

REPORT INFORMATION
  Report Type: 
  Country: None (occurrence: None)
  Receive Date: 20100224
  Receipt Date: 20100216
  Transmission Date: 20100710
  Serious: Yes (Hospitalization)
  Sender: FDA-Public Use
  Company Number: US-BIOGENIDEC-2010BI005215

PATIENT
  Age: 62 Year
  Sex: Female
  Weight: 79 kg

DRUGS (17)
  1. AVONEX [Suspect]
     Indication: MULTIPLE SCLEROSIS
     Route: 030
     Dates: start: 19960101
  2. AVONEX [Suspect]
     Route: 030
     Dates: end: 20040901
  3. AVONEX [Suspect]
     Route: 030
     Dates: start: 20041201
  4. METOPROLOL TARTRATE [Concomitant]
     Indication: BLOOD CHOLESTEROL INCREASED
     Route: 048
  5. HYDROCHLOROTHIAZIDE [Concomitant]
     Route: 048
  6. GLIPIZIDE [Concomitant]
     Route: 048
  7. FLOEXETINE [Concomitant]
     Route: 048
  8. BACLOFEN [Concomitant]
     Route: 048
  9. RAMIPRIL [Concomitant]
     Route: 048
  10. AMLODIPINE [Concomitant]
     Route: 048
  11. TRICOR [Concomitant]
     Route: 048
  12. CALCIUM [Concomitant]
     Route: 048
  13. IRON [Concomitant]
     Route: 048
  14. VITAMINS (NOS) [Concomitant]
     Route: 048
  15. VITAMIN B COMPLEX CAP [Concomitant]
     Route: 048
  16. VYTORIN [Concomitant]
  17. MAGNESIUM CHLORIDE [Concomitant]
     Route: 048

REACTIONS (2)
  - CORONARY ARTERY OCCLUSION [None]
  - DYSPNOEA [None]
